FAERS Safety Report 4615373-4 (Version None)
Quarter: 2005Q1

REPORT INFORMATION
  Report Type: 
  Country: None (occurrence: None)
  Receive Date: 20050317
  Receipt Date: 20050315
  Transmission Date: 20050727
  Serious: Yes (Hospitalization)
  Sender: FDA-Public Use
  Company Number: 211813

PATIENT
  Age: 17 Year
  Sex: Male

DRUGS (7)
  1. MABTHERA (RITUXIMAB) CONC FOR SOLUTION FOR INFUSION [Suspect]
     Indication: DRUG USE FOR UNKNOWN INDICATION
     Dosage: 700 MG, INTRAVENOUS
     Route: 042
     Dates: start: 20041109, end: 20041116
  2. AMOXICILLINE (AMOXICILLIN) [Suspect]
     Dosage: SEE IMAGE
     Route: 048
     Dates: start: 20041025, end: 20041101
  3. AMOXICILLINE (AMOXICILLIN) [Suspect]
     Dosage: SEE IMAGE
     Route: 048
     Dates: start: 20041117, end: 20041121
  4. POTASSIUM CHLORIDE [Concomitant]
  5. OROCAL (CALCIUM CARBONATE) [Concomitant]
  6. FOSAMAX [Concomitant]
  7. PREDNISONE TAB [Concomitant]

REACTIONS (3)
  - AGRANULOCYTOSIS [None]
  - THROMBOCYTOPENIA [None]
  - URINARY TRACT INFECTION [None]
